FAERS Safety Report 12928099 (Version 1)
Quarter: 2016Q4

REPORT INFORMATION
  Report Type: Spontaneous
  Country: US (occurrence: US)
  Receive Date: 20161110
  Receipt Date: 20161110
  Transmission Date: 20170207
  Serious: No
  Sender: FDA-Public Use
  Company Number: None

PATIENT

DRUGS (2)
  1. HYDROXYZINE HCL HYDROXYZINE HERTIAGE CONSUMER PRODUCTS, L.L.C. [Suspect]
     Active Substance: HYDROXYZINE HYDROCHLORIDE
     Dosage: TABLET ORAL 10MH
     Route: 048
  2. HYDROXYZINE HCL HYDROXYZINE HERTIAGE CONSUMER PRODUCTS, L.L.C . [Suspect]
     Active Substance: HYDROXYZINE HYDROCHLORIDE
     Dosage: TABLET
     Route: 048

REACTIONS (1)
  - Product packaging confusion [None]
